FAERS Safety Report 23616674 (Version 1)
Quarter: 2024Q1

REPORT INFORMATION
  Report Type: Spontaneous
  Country: JP (occurrence: JP)
  Receive Date: 20240311
  Receipt Date: 20240311
  Transmission Date: 20240410
  Serious: Yes (Death, Other)
  Sender: FDA-Public Use
  Company Number: JP-MYLANLABS-2024M1019782

PATIENT
  Age: 72 Year
  Sex: Male

DRUGS (6)
  1. CARBOPLATIN [Suspect]
     Active Substance: CARBOPLATIN
     Indication: Lung squamous cell carcinoma stage IV
     Dosage: RECEIVED AT AREA UNDER THE CURVE AT 5
     Route: 065
     Dates: start: 2021
  2. IPILIMUMAB [Suspect]
     Active Substance: IPILIMUMAB
     Indication: Lung squamous cell carcinoma stage IV
     Dosage: 1 MILLIGRAM/KILOGRAM
     Route: 065
     Dates: start: 2021
  3. IPILIMUMAB [Suspect]
     Active Substance: IPILIMUMAB
     Dosage: RECEIVED UNDER UNDER?9LA REGIMEN; DOSE UNKNOWN
     Route: 065
  4. NIVOLUMAB [Suspect]
     Active Substance: NIVOLUMAB
     Indication: Lung squamous cell carcinoma stage IV
     Dosage: 360 MILLIGRAM
     Route: 065
     Dates: start: 2021
  5. NIVOLUMAB [Suspect]
     Active Substance: NIVOLUMAB
     Dosage: RECEIVED UNDER UNDER 9LA REGIMEN; DOSE UNKNOWN
     Route: 065
  6. PACLITAXEL [Suspect]
     Active Substance: PACLITAXEL
     Indication: Lung squamous cell carcinoma stage IV
     Route: 065
     Dates: start: 2021

REACTIONS (1)
  - Drug ineffective [Fatal]
